FAERS Safety Report 7964571-0 (Version None)
Quarter: 2011Q4

REPORT INFORMATION
  Report Type: 
  Country: None (occurrence: None)
  Receive Date: 20111205
  Receipt Date: 20111205
  Transmission Date: 20120403
  Serious: No
  Sender: FDA-Public Use
  Company Number: None

PATIENT
  Sex: Female
  Weight: 53.18 kg

DRUGS (3)
  1. ELOXATIN [Suspect]
     Dosage: 127 MG
     Dates: end: 20080902
  2. LEUCOVORIN CALCIUM [Suspect]
     Dosage: 600 MG
     Dates: end: 20080902
  3. FLUOROURACIL [Suspect]
     Dosage: 4172 MG
     Dates: end: 20080902

REACTIONS (1)
  - LYMPHOCYTE COUNT INCREASED [None]
